FAERS Safety Report 4840134-0 (Version None)
Quarter: 2005Q4

REPORT INFORMATION
  Report Type: 
  Country: None (occurrence: None)
  Receive Date: 20051125
  Receipt Date: 20051117
  Transmission Date: 20060501
  Serious: Yes (Hospitalization, Other)
  Sender: FDA-Public Use
  Company Number: 2005US001667

PATIENT
  Age: 62 Year
  Sex: Male

DRUGS (20)
  1. PROGRAF [Suspect]
     Indication: PROPHYLAXIS AGAINST TRANSPLANT REJECTION
     Dosage: 4.00 MG, BID, ORAL
     Route: 048
     Dates: start: 20050115
  2. MYCOPHENOLATE MOFETIL (MYCOPHENOLATE MOFETIL) [Suspect]
     Indication: PROPHYLAXIS AGAINST TRANSPLANT REJECTION
     Dosage: 1500.00 MG, BID, ORAL
     Route: 048
     Dates: start: 20050112
  3. DAPSONE [Concomitant]
  4. MORPHINE [Concomitant]
  5. NYSTATIN [Concomitant]
  6. PANTOPRAZOLE SODIUM [Concomitant]
  7. INSULIN GLARGINE (INSULIN GLARGINE) [Concomitant]
  8. VALGANCVICLOVIR (VALGANCICLOVIR) [Concomitant]
  9. NIFEDIPINE [Concomitant]
  10. DOXAZOSIN (DOXAZOSIN) [Concomitant]
  11. AVODART [Concomitant]
  12. INSULIN [Concomitant]
  13. ASPIRIN [Concomitant]
  14. LIPITOR [Concomitant]
  15. PROTONIX [Concomitant]
  16. ATENOLOL [Concomitant]
  17. CALCIUM CARBONATE (CALCIUM CARBONATE) [Concomitant]
  18. VITAMIN D [Concomitant]
  19. ISOPHANE INSULIN (ISOPHANE INSULIN) [Concomitant]
  20. INSULIN [Concomitant]

REACTIONS (7)
  - APHTHOUS STOMATITIS [None]
  - BACTERIAL INFECTION [None]
  - CULTURE URINE POSITIVE [None]
  - KIDNEY TRANSPLANT REJECTION [None]
  - NEPHRITIS INTERSTITIAL [None]
  - NEUTROPENIA [None]
  - WHITE BLOOD CELL COUNT DECREASED [None]
